FAERS Safety Report 6785195-7 (Version None)
Quarter: 2010Q2

REPORT INFORMATION
  Report Type: 
  Country: None (occurrence: None)
  Receive Date: 20100621
  Receipt Date: 20100621
  Transmission Date: 20101027
  Serious: Yes (Life-Threatening, Hospitalization, Disabling, Other)
  Sender: FDA-Public Use
  Company Number: None

PATIENT
  Sex: Male
  Weight: 63.5036 kg

DRUGS (1)
  1. SPIRIVA [Suspect]
     Indication: DYSPNOEA
     Dosage: 18 MCG 1 PER DAY OTHER
     Route: 050
     Dates: start: 20100512, end: 20100516

REACTIONS (3)
  - BACK PAIN [None]
  - CONVULSION [None]
  - HALLUCINATION [None]
